FAERS Safety Report 7958968-2 (Version None)
Quarter: 2011Q4

REPORT INFORMATION
  Report Type: 
  Country: None (occurrence: None)
  Receive Date: 20111206
  Receipt Date: 20111122
  Transmission Date: 20120403
  Serious: Yes (Hospitalization)
  Sender: FDA-Public Use
  Company Number: IT-AMGEN-UK337272

PATIENT
  Age: 70 Year
  Sex: Female

DRUGS (3)
  1. PANITUMUMAB [Suspect]
     Dosage: 360 MG, Q2WK
     Route: 042
     Dates: start: 20090127, end: 20090224
  2. OXALIPLATIN [Suspect]
     Dosage: 100 MG, UNK
     Dates: end: 20090224
  3. FLUOROURACIL [Suspect]
     Dosage: 2610 MG, UNK
     Dates: end: 20090224

REACTIONS (2)
  - CLOSTRIDIUM DIFFICILE COLITIS [None]
  - DIARRHOEA [None]
